FAERS Safety Report 4637032-4 (Version None)
Quarter: 2005Q2

REPORT INFORMATION
  Report Type: 
  Country: None (occurrence: None)
  Receive Date: 20050328
  Receipt Date: 20050221
  Transmission Date: 20051028
  Serious: No
  Sender: FDA-Public Use
  Company Number: USA041285150

PATIENT
  Age: 56 Year
  Sex: Male

DRUGS (3)
  1. STRATTERA [Suspect]
     Indication: ATTENTION DEFICIT/HYPERACTIVITY DISORDER
     Dosage: 80 MG DAY
     Dates: start: 20041111
  2. LISINOPRIL [Concomitant]
  3. PROLONIX [Concomitant]

REACTIONS (3)
  - INFLUENZA [None]
  - KIDNEY INFECTION [None]
  - URINARY HESITATION [None]
